FAERS Safety Report 9820656 (Version 2)
Quarter: 2015Q3

REPORT INFORMATION
  Report Type: Spontaneous
  Country: US (occurrence: US)
  Receive Date: 20140116
  Receipt Date: 20150916
  Transmission Date: 20151125
  Serious: Yes (Other)
  Sender: FDA-Public Use
  Company Number: US-PFIZER INC-2014011730

PATIENT
  Age: 66 Year
  Sex: Male
  Weight: 122 kg

DRUGS (15)
  1. PROCARDIA [Suspect]
     Active Substance: NIFEDIPINE
     Indication: BLOOD CHOLESTEROL ABNORMAL
     Dosage: 10 MG, 1X/DAY
  2. GLIPIZIDE. [Suspect]
     Active Substance: GLIPIZIDE
     Indication: DIABETES MELLITUS
     Dosage: 10 MG, 2X/DAY
  3. LEVOTHYROXINE. [Concomitant]
     Active Substance: LEVOTHYROXINE
     Indication: THYROID DISORDER
     Dosage: UNK
  4. NARDIL [Suspect]
     Active Substance: PHENELZINE SULFATE
     Indication: DEPRESSION
     Dosage: 30 MG, 2X/DAY
     Dates: start: 1980
  5. LOSARTAN POTASSIUM. [Suspect]
     Active Substance: LOSARTAN POTASSIUM
     Indication: HYPERTENSION
     Dosage: 100 MG, 1X/DAY
  6. VALIUM [Concomitant]
     Active Substance: DIAZEPAM
     Indication: HYPERTENSIVE CRISIS
     Dosage: UNK, AS NEEDED(BETWEEN 2 MG AND 5 MG)
     Route: 048
  7. NARDIL [Suspect]
     Active Substance: PHENELZINE SULFATE
     Indication: ANXIETY
  8. VIAGRA [Suspect]
     Active Substance: SILDENAFIL CITRATE
     Dosage: 100 MG, AS NEEDED
  9. PROCARDIA [Suspect]
     Active Substance: NIFEDIPINE
     Indication: HYPERLIPIDAEMIA
  10. LEVOTHYROXINE SODIUM. [Suspect]
     Active Substance: LEVOTHYROXINE SODIUM
     Indication: HYPOTHYROIDISM
     Dosage: UNK
  11. KLONOPIN [Concomitant]
     Active Substance: CLONAZEPAM
     Indication: ANXIETY
     Dosage: 1/2 OR 1/4 TID, AS NEEDED
  12. TAMSULOSIN HYDROCHLORIDE. [Suspect]
     Active Substance: TAMSULOSIN HYDROCHLORIDE
     Indication: BENIGN PROSTATIC HYPERPLASIA
     Dosage: 0.4 MG, 2X/DAY
  13. METFORMIN HCL [Suspect]
     Active Substance: METFORMIN HYDROCHLORIDE
     Dosage: 2000 MG, 2X/DAY
  14. VIAGRA [Suspect]
     Active Substance: SILDENAFIL CITRATE
     Dosage: 50 MG, AS NEEDED
  15. METFORMIN HCL [Suspect]
     Active Substance: METFORMIN HYDROCHLORIDE
     Indication: DIABETES MELLITUS
     Dosage: 200 MG, 2X/DAY

REACTIONS (6)
  - Blood testosterone decreased [Not Recovered/Not Resolved]
  - Hypertensive crisis [Recovered/Resolved]
  - Large intestine polyp [Unknown]
  - Weight decreased [Unknown]
  - Colon cancer [Not Recovered/Not Resolved]
  - Weight increased [Unknown]

NARRATIVE: CASE EVENT DATE: 1990
